FAERS Safety Report 9266248 (Version 3)
Quarter: 2013Q3

REPORT INFORMATION
  Report Type: Spontaneous
  Country: FI (occurrence: FI)
  Receive Date: 20130502
  Receipt Date: 20130703
  Transmission Date: 20140515
  Serious: Yes (Death, Life-Threatening)
  Sender: FDA-Public Use
  Company Number: FI-ROCHE-1218445

PATIENT
  Age: 82 Year
  Sex: Male

DRUGS (6)
  1. MABTHERA [Suspect]
     Indication: B-CELL LYMPHOMA
     Route: 042
  2. LEVACT (FINLAND) [Suspect]
     Indication: LYMPHOMA
     Route: 042
     Dates: start: 201203
  3. CARDACE [Concomitant]
     Route: 048
  4. ORMOX [Concomitant]
     Route: 048
  5. KLEXANE [Concomitant]
     Dosage: 100 MG/ML
     Route: 058
  6. KALCIPOS-D [Concomitant]
     Dosage: 500MG/400 IU
     Route: 048

REACTIONS (4)
  - Progressive multifocal leukoencephalopathy [Fatal]
  - Vision blurred [Unknown]
  - Movement disorder [Unknown]
  - Disorientation [Unknown]
